FAERS Safety Report 4726979-6 (Version None)
Quarter: 2005Q3

REPORT INFORMATION
  Report Type: 
  Country: None (occurrence: None)
  Receive Date: 20050726
  Receipt Date: 20050726
  Transmission Date: 20060218
  Serious: Yes (Hospitalization)
  Sender: FDA-Public Use
  Company Number: None

PATIENT
  Age: 65 Year
  Sex: Male

DRUGS (14)
  1. NALOXONE [Suspect]
     Indication: REVERSAL OF OPIATE ACTIVITY
     Dosage: 0.8MG IV ONCE
     Route: 042
     Dates: start: 20050611, end: 20050611
  2. MS CONTIN [Suspect]
     Indication: BACK PAIN
     Dosage: 60MG PO Q8H
     Route: 048
     Dates: start: 20050323, end: 20050725
  3. ALLOPURINOL [Concomitant]
  4. TYLENOL NO. 4 [Concomitant]
  5. TERAZOSIN [Concomitant]
  6. MORPHINE [Concomitant]
  7. CELEXA [Concomitant]
  8. REMERON [Concomitant]
  9. ZYPREXA [Concomitant]
  10. DONEPEZIL HCL [Concomitant]
  11. CLONAZEPAM [Concomitant]
  12. ALBUTEROL [Concomitant]
  13. ATROVENT [Concomitant]
  14. COLCHICINE [Concomitant]

REACTIONS (4)
  - CONVULSION [None]
  - LOSS OF CONSCIOUSNESS [None]
  - MENTAL STATUS CHANGES [None]
  - OVERDOSE [None]
